FAERS Safety Report 5674629-7 (Version None)
Quarter: 2008Q2

REPORT INFORMATION
  Report Type: 
  Country: None (occurrence: None)
  Receive Date: 20080304
  Receipt Date: 20070829
  Transmission Date: 20081010
  Serious: Yes (Hospitalization, Other)
  Sender: FDA-Public Use
  Company Number: WAES 0709USA00285

PATIENT
  Age: 58 Year
  Sex: Female
  Weight: 148.3262 kg

DRUGS (2)
  1. PRINIVIL [Suspect]
     Dosage: PO
     Route: 048
     Dates: end: 20010101
  2. NOVOLIN 70/30 [Concomitant]

REACTIONS (4)
  - BRONCHITIS [None]
  - BRONCHOSPASM [None]
  - PNEUMONIA [None]
  - RENAL FAILURE ACUTE [None]
